FAERS Safety Report 18198705 (Version 2)
Quarter: 2020Q3

REPORT INFORMATION
  Report Type: Report from Study
  Country: SE (occurrence: SE)
  Receive Date: 20200826
  Receipt Date: 20200915
  Transmission Date: 20201103
  Serious: Yes (Hospitalization)
  Sender: FDA-Public Use
  Company Number: SE-SA-2019SA269722

PATIENT

DRUGS (23)
  1. CYTARABINE. [Suspect]
     Active Substance: CYTARABINE
     Indication: ACUTE MYELOID LEUKAEMIA
     Dosage: 10 G/M2, DAYS 8 TO 12, INCLUSIVE
     Route: 042
     Dates: start: 20190917, end: 20190917
  2. DEXAMETHASONE. [Suspect]
     Active Substance: DEXAMETHASONE
     Indication: ACUTE MYELOID LEUKAEMIA
     Dosage: 16 MG/M2, QW
     Route: 048
     Dates: start: 20190913, end: 20190913
  3. DIAZEPAM. [Concomitant]
     Active Substance: DIAZEPAM
     Indication: PROPHYLAXIS
     Dosage: UNK
     Route: 048
     Dates: start: 20190906, end: 20190916
  4. ONDANSETRON [Concomitant]
     Active Substance: ONDANSETRON
     Indication: PROPHYLAXIS
     Dosage: UNK
     Route: 048
     Dates: start: 20190913, end: 20190920
  5. METOTREXATE [Concomitant]
     Active Substance: METHOTREXATE SODIUM
     Dosage: UNK
     Route: 065
     Dates: start: 20190912, end: 20190912
  6. MEROPENEM. [Concomitant]
     Active Substance: MEROPENEM
     Dosage: UNK
     Route: 042
     Dates: start: 20190907, end: 20191006
  7. PARACETAMOL [Concomitant]
     Active Substance: ACETAMINOPHEN
     Dosage: 1000 MG, 1X
     Route: 048
     Dates: start: 20190913, end: 20190917
  8. FLUDARABINE [Suspect]
     Active Substance: FLUDARABINE PHOSPHATE
     Dosage: 30 MG/M2, DAYS 8 TO 12, INCLUSIVE.
     Route: 042
     Dates: start: 20190906, end: 20190906
  9. IDARUBICIN [Suspect]
     Active Substance: IDARUBICIN
     Indication: ACUTE MYELOID LEUKAEMIA
     Dosage: 10 MG/M2, DAY 8, 10,AND 12.
     Route: 042
     Dates: start: 20190913, end: 20190913
  10. MAGNESIUM HYDROXIDE. [Concomitant]
     Active Substance: MAGNESIUM HYDROXIDE
     Indication: PROPHYLAXIS
     Dosage: UNK
     Route: 048
     Dates: start: 20190905
  11. FLUDARABINE [Suspect]
     Active Substance: FLUDARABINE PHOSPHATE
     Indication: ACUTE MYELOID LEUKAEMIA
     Dosage: 150 MG/M2, DAYS 8 TO 12, INCLUSIVE.
     Route: 042
     Dates: start: 20190917, end: 20190917
  12. CYTARABIN [Concomitant]
     Active Substance: CYTARABINE
     Dosage: UNK
     Dates: start: 20190912, end: 20190912
  13. PARACETAMOL [Concomitant]
     Active Substance: ACETAMINOPHEN
     Indication: PROPHYLAXIS
     Dosage: 1000 MG, 1X
     Route: 048
     Dates: start: 20190905, end: 20190908
  14. CLEMASTINE [Concomitant]
     Active Substance: CLEMASTINE
     Indication: PROPHYLAXIS
     Dosage: 2 MG, 1X
     Route: 042
     Dates: start: 20190906, end: 20190906
  15. BETAMETHASONE. [Concomitant]
     Active Substance: BETAMETHASONE
     Indication: PROPHYLAXIS
     Dosage: 8 MG, 1X
     Route: 042
     Dates: start: 20190915, end: 20190918
  16. PREDNISOLONE. [Concomitant]
     Active Substance: PREDNISOLONE
     Indication: PROPHYLAXIS
     Dosage: UNK
     Route: 047
     Dates: start: 20190913, end: 20190917
  17. ISATUXIMAB [Suspect]
     Active Substance: ISATUXIMAB
     Dosage: 20 MG/KG, QW
     Route: 042
     Dates: start: 20190906, end: 20190906
  18. IDARUBICIN [Suspect]
     Active Substance: IDARUBICIN
     Dosage: 10 MG/M2, DAY 8, 10,AND 12.
     Route: 042
     Dates: start: 20190906, end: 20190906
  19. ISATUXIMAB [Suspect]
     Active Substance: ISATUXIMAB
     Indication: ACUTE MYELOID LEUKAEMIA
     Dosage: 20 MG/KG, QW
     Route: 042
     Dates: start: 20190913, end: 20190913
  20. CYTARABINE. [Suspect]
     Active Substance: CYTARABINE
     Dosage: 2 G/M2, DAYS 8 TO 12, INCLUSIVE
     Route: 042
     Dates: start: 20190906, end: 20190906
  21. DEXAMETHASONE. [Suspect]
     Active Substance: DEXAMETHASONE
     Dosage: 10 MG/M2, DAYS ?3, ?2, ?1, 1,
     Route: 065
     Dates: start: 20190906, end: 20190906
  22. CLEMASTINE [Concomitant]
     Active Substance: CLEMASTINE
     Dosage: 2 MG, 1X
     Route: 042
     Dates: start: 20190913, end: 20190913
  23. PREDNISOLONE. [Concomitant]
     Active Substance: PREDNISOLONE
     Dosage: UNK
     Route: 065
     Dates: start: 20190912, end: 20190912

REACTIONS (1)
  - Febrile neutropenia [Recovered/Resolved]

NARRATIVE: CASE EVENT DATE: 20190919
